FAERS Safety Report 19593334 (Version 1)
Quarter: 2021Q3

REPORT INFORMATION
  Report Type: Spontaneous
  Country: US (occurrence: US)
  Receive Date: 20210722
  Receipt Date: 20210722
  Transmission Date: 20211014
  Serious: Yes (Disabling)
  Sender: FDA-Public Use
  Company Number: None

PATIENT
  Age: 28 Year
  Sex: Male
  Weight: 68.85 kg

DRUGS (1)
  1. GADAVIST [Suspect]
     Active Substance: GADOBUTROL
     Indication: MAGNETIC RESONANCE IMAGING
     Dosage: ?          QUANTITY:1 INJECTION(S);OTHER ROUTE:IV INJECTION?
     Dates: start: 20210410, end: 20210410

REACTIONS (31)
  - Peripheral coldness [None]
  - Chest pain [None]
  - Pain in extremity [None]
  - Neck pain [None]
  - Dyspnoea [None]
  - Groin pain [None]
  - Myalgia [None]
  - Musculoskeletal pain [None]
  - Dizziness [None]
  - Acne [None]
  - Back pain [None]
  - Hyperhidrosis [None]
  - Hypoaesthesia [None]
  - Headache [None]
  - Palpitations [None]
  - Paraesthesia [None]
  - Abdominal rigidity [None]
  - Arthralgia [None]
  - Pain [None]
  - Oropharyngeal pain [None]
  - Vertigo [None]
  - Tremor [None]
  - Ear pain [None]
  - Penile discomfort [None]
  - Diarrhoea [None]
  - Head discomfort [None]
  - Fatigue [None]
  - Pain in jaw [None]
  - Eye pain [None]
  - Dry mouth [None]
  - Muscle twitching [None]

NARRATIVE: CASE EVENT DATE: 20210410
